FAERS Safety Report 9325021 (Version 1)
Quarter: 2013Q2

REPORT INFORMATION
  Report Type: Spontaneous
  Country: BR (occurrence: BR)
  Receive Date: 20130603
  Receipt Date: 20130603
  Transmission Date: 20140414
  Serious: Yes (Congenital Anomaly)
  Sender: FDA-Public Use
  Company Number: BR-ASTRAZENECA-2013SE37093

PATIENT
  Age: 0 Day
  Sex: Female
  Weight: 3.6 kg

DRUGS (1)
  1. NEXIUM [Suspect]
     Indication: GASTROOESOPHAGEAL REFLUX DISEASE
     Route: 064
     Dates: start: 201210, end: 20130325

REACTIONS (1)
  - Allergic respiratory disease [Not Recovered/Not Resolved]
